FAERS Safety Report 16485417 (Version 1)
Quarter: 2019Q2

REPORT INFORMATION
  Report Type: Other
  Country: CN (occurrence: CN)
  Receive Date: 20190627
  Receipt Date: 20190627
  Transmission Date: 20190711
  Serious: No
  Sender: FDA-Public Use
  Company Number: CN-AGG-03-2019-1185

PATIENT

DRUGS (3)
  1. AGGRASTAT [Suspect]
     Active Substance: TIROFIBAN HYDROCHLORIDE
     Indication: ANTIPLATELET THERAPY
     Dosage: TIROFIBAN ADMINISTERED WITHIN 2-12 HOURS OF THROMBOLYSIS
     Route: 041
  2. AGGRASTAT [Suspect]
     Active Substance: TIROFIBAN HYDROCHLORIDE
     Indication: OFF LABEL USE
     Dosage: TIROFIBAN ADMINISTERED WITHIN 2-12 HOURS OF THROMBOLYSIS
     Route: 040
  3. ACTILYSE [Concomitant]
     Active Substance: ALTEPLASE

REACTIONS (1)
  - Haemorrhage [Unknown]

NARRATIVE: CASE EVENT DATE: 20181230
